FAERS Safety Report 8535525-0 (Version None)
Quarter: 2012Q3

REPORT INFORMATION
  Report Type: 
  Country: None (occurrence: None)
  Receive Date: 20120718
  Receipt Date: 20120718
  Transmission Date: 20120928
  Serious: Yes (Disabling)
  Sender: FDA-Public Use
  Company Number: None

PATIENT
  Age: 34 Year
  Sex: Male
  Weight: 74.8435 kg

DRUGS (1)
  1. CLOBETASOL PROPIONATE [Suspect]
     Indication: VITILIGO
     Dosage: APPLIED TO EFFECTED AREAS 2 X DAY

REACTIONS (6)
  - SKIN INJURY [None]
  - PENIS DISORDER [None]
  - SKIN ATROPHY [None]
  - VASODILATATION [None]
  - SCROTAL DISORDER [None]
  - ERYTHEMA [None]
